FAERS Safety Report 9501963 (Version 1)
Quarter: 2013Q3

REPORT INFORMATION
  Report Type: Report from Study
  Country: JP (occurrence: JP)
  Receive Date: 20130905
  Receipt Date: 20130905
  Transmission Date: 20140515
  Serious: Yes (Other)
  Sender: FDA-Public Use
  Company Number: JP-PFIZER INC-2013245883

PATIENT
  Age: 75 Year
  Sex: Male
  Weight: 45 kg

DRUGS (6)
  1. ADRIACIN [Suspect]
     Dosage: UNK
  2. KW-0761 [Suspect]
     Indication: ADULT T-CELL LYMPHOMA/LEUKAEMIA
     Dosage: 1 MG/KG, WEEKLY (1X/WEEK)
     Route: 041
     Dates: start: 20120605, end: 20120724
  3. DIPHENHYDRAMINE [Concomitant]
     Dosage: UNK
     Dates: start: 20120605, end: 20120724
  4. ACETAMINOPHEN [Concomitant]
     Dosage: UNK
     Dates: start: 20120605, end: 20120724
  5. SOLU-CORTEF [Concomitant]
     Dosage: UNK
     Dates: start: 20120605, end: 20120724
  6. BAKTAR [Concomitant]
     Dosage: UNK
     Route: 048
     Dates: start: 20120419

REACTIONS (1)
  - Hepatitis B [Recovered/Resolved]
